FAERS Safety Report 5989352-9 (Version None)
Quarter: 2008Q4

REPORT INFORMATION
  Report Type: 
  Country: None (occurrence: None)
  Receive Date: 20081205
  Receipt Date: 20081125
  Transmission Date: 20090506
  Serious: No
  Sender: FDA-Public Use
  Company Number: JP-GDP-08404965

PATIENT
  Age: 15 Year
  Sex: Male

DRUGS (3)
  1. DIFFERIN [Suspect]
     Indication: ACNE
     Dosage: (0.5 G TOPICAL)
     Route: 061
     Dates: start: 20081101, end: 20081108
  2. FLAVINE ADENINE DINUCLEOTIDE [Concomitant]
  3. PYDOXAL [Concomitant]

REACTIONS (1)
  - SKIN EROSION [None]
